FAERS Safety Report 17148446 (Version 1)
Quarter: 2019Q4

REPORT INFORMATION
  Report Type: Report from Study
  Country: None (occurrence: AU)
  Receive Date: 20191212
  Receipt Date: 20191212
  Transmission Date: 20200122
  Serious: Yes (Other)
  Sender: FDA-Public Use
  Company Number: AU-ABBVIE-19K-008-3185366-00

PATIENT
  Age: 63 Year
  Sex: Female

DRUGS (1)
  1. HUMIRA [Suspect]
     Active Substance: ADALIMUMAB
     Indication: PSORIATIC ARTHROPATHY
     Route: 058
     Dates: end: 20191017

REACTIONS (5)
  - Thrombosis [Not Recovered/Not Resolved]
  - Wound [Not Recovered/Not Resolved]
  - Joint dislocation [Unknown]
  - Foot deformity [Unknown]
  - Procedural pain [Unknown]

NARRATIVE: CASE EVENT DATE: 201911
